FAERS Safety Report 6012442-1 (Version None)
Quarter: 2008Q4

REPORT INFORMATION
  Report Type: 
  Country: None (occurrence: None)
  Receive Date: 20081218
  Receipt Date: 20081209
  Transmission Date: 20090506
  Serious: Yes (Hospitalization)
  Sender: FDA-Public Use
  Company Number: BR-ELI_LILLY_AND_COMPANY-BR200812002378

PATIENT
  Age: 79 Year
  Sex: Female
  Weight: 47 kg

DRUGS (8)
  1. FORTEO [Suspect]
     Indication: OSTEOPOROSIS
     Dosage: UNK, DAILY (1/D)
     Route: 058
     Dates: start: 20080401
  2. FORMOTEROL FUMARATE [Concomitant]
     Dosage: UNK, 2/D
     Route: 055
  3. BUDESONIDE [Concomitant]
     Dosage: UNK, 2/D
     Route: 055
  4. BEROTEC [Concomitant]
     Dosage: 3 GTT, AS NEEDED
     Route: 055
  5. ATROVENT [Concomitant]
     Dosage: 10 GTT, AS NEEDED
     Route: 055
  6. LIPITOR [Concomitant]
     Dosage: 40 MG, DAILY (1/D)
     Route: 048
  7. CALCIUM [Concomitant]
     Dosage: 500 MG, 2/D
     Route: 048
  8. SERUM PHYSIOLOGICAL [Concomitant]
     Dosage: UNK, UNKNOWN
     Route: 055

REACTIONS (3)
  - INFLUENZA [None]
  - MUSCULOSKELETAL CHEST PAIN [None]
  - WEIGHT DECREASED [None]
